FAERS Safety Report 4976615-9 (Version None)
Quarter: 2006Q2

REPORT INFORMATION
  Report Type: 
  Country: None (occurrence: None)
  Receive Date: 20060419
  Receipt Date: 20051004
  Transmission Date: 20061013
  Serious: Yes (Hospitalization, Disabling)
  Sender: FDA-Public Use
  Company Number: US-MERCK-0510USA03525

PATIENT
  Age: 40 Year
  Sex: Female
  Weight: 84 kg

DRUGS (3)
  1. VIOXX [Suspect]
     Indication: PAIN
     Route: 048
     Dates: start: 20020101, end: 20030101
  2. VIOXX [Suspect]
     Route: 048
     Dates: start: 20020101, end: 20030101
  3. ASPIRIN [Concomitant]
     Route: 065

REACTIONS (5)
  - CARDIAC DISORDER [None]
  - CARDIAC FAILURE CONGESTIVE [None]
  - CHEST PAIN [None]
  - HEADACHE [None]
  - THROMBOSIS [None]
